FAERS Safety Report 6218574-7 (Version None)
Quarter: 2009Q2

REPORT INFORMATION
  Report Type: 
  Country: None (occurrence: None)
  Receive Date: 20090608
  Receipt Date: 20090526
  Transmission Date: 20091009
  Serious: Yes (Hospitalization)
  Sender: FDA-Public Use
  Company Number: US-BAYER-200922494NA

PATIENT
  Age: 51 Year
  Sex: Female

DRUGS (8)
  1. CAMPATH [Suspect]
     Indication: MULTIPLE SCLEROSIS
     Route: 042
     Dates: start: 20090301
  2. AMANTADINE HCL [Concomitant]
  3. ESTRADIOL [Concomitant]
  4. FIBERCON [Concomitant]
  5. LIDOCAINE [Concomitant]
  6. LISINOPRIL [Concomitant]
  7. BACLOFEN [Concomitant]
  8. PREVACID [Concomitant]

REACTIONS (1)
  - OROPHARYNGEAL BLISTERING [None]
